FAERS Safety Report 18813219 (Version 1)
Quarter: 2021Q1

REPORT INFORMATION
  Report Type: Spontaneous
  Country: US (occurrence: US)
  Receive Date: 20210131
  Receipt Date: 20210131
  Transmission Date: 20210419
  Serious: Yes (Other)
  Sender: FDA-Public Use
  Company Number: US-PURDUE-USA-2020-0166555

PATIENT
  Sex: Male

DRUGS (1)
  1. OXYCONTIN [Suspect]
     Active Substance: OXYCODONE HYDROCHLORIDE
     Indication: PAIN MANAGEMENT
     Dosage: 160 MG, UNK
     Route: 048

REACTIONS (5)
  - Pain [None]
  - Suicide attempt [Unknown]
  - Headache [Not Recovered/Not Resolved]
  - Withdrawal syndrome [None]
  - Dependence [None]
